FAERS Safety Report 7867705-1 (Version None)
Quarter: 2011Q4

REPORT INFORMATION
  Report Type: 
  Country: None (occurrence: None)
  Receive Date: 20111026
  Receipt Date: 20111018
  Transmission Date: 20120403
  Serious: Yes (Hospitalization)
  Sender: FDA-Public Use
  Company Number: AUR-APL-2011-05517

PATIENT
  Age: 84 Year
  Sex: Male

DRUGS (9)
  1. FLECAINIDE ACETATE [Suspect]
     Indication: ATRIAL FIBRILLATION
     Dosage: (100 MG, 1 D), ORAL
     Route: 048
     Dates: start: 20070101, end: 20110814
  2. ATENOLOL [Suspect]
     Indication: PRODUCT USED FOR UNKNOWN INDICATION
     Dosage: (50 MG, 1 D), ORAL
     Route: 048
     Dates: start: 20070101, end: 20110815
  3. COUMADIN [Concomitant]
  4. ALLOPURINOL [Concomitant]
  5. EUTIROX (LEVOTHYROXINE) [Concomitant]
  6. FUROSEMIDE [Concomitant]
  7. ENALAPRIL MALEATE [Concomitant]
  8. GLUCOPHAGE [Concomitant]
  9. ESKIM (OMEGA-3 TRIGLYCERIDES) [Concomitant]

REACTIONS (4)
  - SINUS BRADYCARDIA [None]
  - LOSS OF CONSCIOUSNESS [None]
  - SYNCOPE [None]
  - HEAD INJURY [None]
